FAERS Safety Report 8735799 (Version 2)
Quarter: 2012Q4

REPORT INFORMATION
  Report Type: 
  Country: BR (occurrence: BR)
  Receive Date: 20120822
  Receipt Date: 20120911
  Transmission Date: 20130627
  Serious: Yes (Hospitalization)
  Sender: FDA-Public Use
  Company Number: BR-RANBAXY-2012RR-59022

PATIENT
  Age: 28 Year
  Sex: Male

DRUGS (10)
  1. MYCOPHENOLATE MOFETIL [Suspect]
     Indication: IMMUNOSUPPRESSANT DRUG THERAPY
     Dosage: 1.5 mg/day
     Route: 065
  2. GANCICLOVIR [Suspect]
     Indication: CYTOMEGALOVIRUS INFECTION
     Dosage: 1000 mg, bid
     Route: 048
  3. PREDNISONE [Suspect]
     Indication: IMMUNOSUPPRESSANT DRUG THERAPY
     Dosage: 30 mg/day
     Route: 065
  4. TACROLIMUS [Suspect]
     Indication: IMMUNOSUPPRESSANT DRUG THERAPY
     Dosage: 8 mg/day
     Route: 065
  5. GANCICLOVIR [Suspect]
     Indication: PROPHYLAXIS
     Dosage: 5 mg/kg, bid
     Route: 042
  6. GANCICLOVIR [Suspect]
     Indication: PROPHYLAXIS
     Dosage: 5 mg/kg on alternate days
     Route: 042
  7. GANCICLOVIR [Suspect]
     Indication: CYTOMEGALOVIRUS INFECTION
     Dosage: 5 mg/kg, daily
     Route: 042
  8. GANCICLOVIR [Suspect]
     Indication: CYTOMEGALOVIRUS INFECTION
     Dosage: 5 mg/kg, bid
     Route: 042
  9. GANCICLOVIR [Suspect]
     Indication: CYTOMEGALOVIRUS INFECTION
     Dosage: UNK
     Route: 042
  10. GANCICLOVIR [Suspect]
     Indication: CYTOMEGALOVIRUS INFECTION
     Dosage: UNK
     Route: 042

REACTIONS (6)
  - Anaemia [Unknown]
  - Hepatic enzyme increased [Unknown]
  - Thrombocytopenia [Recovered/Resolved]
  - Leukopenia [Recovered/Resolved]
  - Gastritis [Unknown]
  - Pathogen resistance [Unknown]
